FAERS Safety Report 7595323-1 (Version None)
Quarter: 2011Q2

REPORT INFORMATION
  Report Type: 
  Country: None (occurrence: None)
  Receive Date: 20110620
  Receipt Date: 20110421
  Transmission Date: 20111010
  Serious: Yes (Death, Hospitalization)
  Sender: FDA-Public Use
  Company Number: UTC-006546

PATIENT
  Age: 67 Year
  Sex: Female

DRUGS (1)
  1. TYVASO [Suspect]
     Indication: COR PULMONALE CHRONIC
     Dosage: 144 MCG (36 MCG, 4 IN 1 D), INHALATION
     Route: 055
     Dates: start: 20100830, end: 20110401

REACTIONS (6)
  - URINARY TRACT INFECTION [None]
  - SEPSIS [None]
  - HYPOTENSION [None]
  - CLOSTRIDIAL INFECTION [None]
  - DIARRHOEA [None]
  - CARDIAC FAILURE [None]
